FAERS Safety Report 24169864 (Version 1)
Quarter: 2024Q3

REPORT INFORMATION
  Report Type: Report from Study
  Country: US (occurrence: US)
  Receive Date: 20240803
  Receipt Date: 20240803
  Transmission Date: 20241017
  Serious: Yes (Other)
  Sender: JOHNSON AND JOHNSON
  Company Number: US-JNJFOC-20240721456

PATIENT
  Age: 69 Year
  Sex: Male

DRUGS (6)
  1. SPRAVATO [Suspect]
     Active Substance: ESKETAMINE
     Indication: Depression
     Dosage: 56 MG, TOTAL OF 1 DOSE
     Dates: start: 20240705, end: 20240705
  2. SPRAVATO [Suspect]
     Active Substance: ESKETAMINE
     Dosage: 56 MG, TOTAL OF 2 DOSES
     Dates: start: 20240709, end: 20240711
  3. SPRAVATO [Suspect]
     Active Substance: ESKETAMINE
     Dosage: 56 MG, TOTAL OF 1 DOSE
     Dates: start: 20240716, end: 20240716
  4. SPRAVATO [Suspect]
     Active Substance: ESKETAMINE
     Dosage: 56 MG, TOTAL OF 2 DOSES,
     Dates: start: 20240718, end: 20240723
  5. SPRAVATO [Suspect]
     Active Substance: ESKETAMINE
     Dosage: 56 MG, TOTAL OF 1 DOSE
     Dates: start: 20240725, end: 20240725
  6. CLONIDINE [Suspect]
     Active Substance: CLONIDINE
     Indication: Blood pressure increased
     Route: 065
     Dates: start: 20240716

REACTIONS (9)
  - Hallucination [Unknown]
  - Dizziness [Unknown]
  - Blood pressure increased [Unknown]
  - Nervousness [Unknown]
  - Decreased appetite [Unknown]
  - Flatulence [Unknown]
  - Dissociation [Unknown]
  - Incoherent [Recovered/Resolved]
  - Sleep disorder [Unknown]

NARRATIVE: CASE EVENT DATE: 20240705
